FAERS Safety Report 6519971-2 (Version None)
Quarter: 2009Q4

REPORT INFORMATION
  Report Type: 
  Country: None (occurrence: None)
  Receive Date: 20091229
  Receipt Date: 20091221
  Transmission Date: 20100525
  Serious: Yes (Hospitalization)
  Sender: FDA-Public Use
  Company Number: JP-ASTRAZENECA-2009SE33077

PATIENT
  Age: 83 Year
  Sex: Female

DRUGS (3)
  1. OMEPRAL [Suspect]
     Indication: REFLUX OESOPHAGITIS
     Route: 048
     Dates: end: 20080902
  2. LENDORMIN [Concomitant]
     Route: 048
  3. FLUMETHOLON [Concomitant]
     Route: 047

REACTIONS (1)
  - GASTROINTESTINAL INFECTION [None]
